FAERS Safety Report 13259885 (Version 13)
Quarter: 2021Q4

REPORT INFORMATION
  Report Type: Spontaneous
  Country: US (occurrence: US)
  Receive Date: 20170222
  Receipt Date: 20211215
  Transmission Date: 20220303
  Serious: Yes (Hospitalization)
  Sender: FDA-Public Use
  Company Number: US-PFIZER INC-2017070855

PATIENT
  Age: 64 Year
  Sex: Male
  Weight: 90.72 kg

DRUGS (2)
  1. RAPAMUNE [Suspect]
     Active Substance: SIROLIMUS
     Indication: Prophylaxis against transplant rejection
     Dosage: 2 MG, TAKE TWO TABLETS (2 MG) BY MOUTH DAILY^
     Route: 048
  2. RAPAMUNE [Suspect]
     Active Substance: SIROLIMUS
     Dosage: 2 MG, 2X/DAY
     Route: 048

REACTIONS (7)
  - Liver disorder [Unknown]
  - Diabetic ulcer [Unknown]
  - Suspected COVID-19 [Unknown]
  - Pain [Unknown]
  - Off label use [Not Recovered/Not Resolved]
  - Off label use [Unknown]
  - Weight increased [Unknown]
